FAERS Safety Report 18783602 (Version 1)
Quarter: 2021Q1

REPORT INFORMATION
  Report Type: Other
  Country: UA (occurrence: UA)
  Receive Date: 20210125
  Receipt Date: 20210125
  Transmission Date: 20210419
  Serious: Yes (Death)
  Sender: FDA-Public Use
  Company Number: UA-ROCHE-2756801

PATIENT

DRUGS (1)
  1. RITUXIMAB. [Suspect]
     Active Substance: RITUXIMAB
     Indication: RHEUMATIC DISORDER
     Dosage: 500 MG2
     Route: 065

REACTIONS (3)
  - Infection [Fatal]
  - Off label use [Unknown]
  - Intentional product use issue [Unknown]
